FAERS Safety Report 24424597 (Version 1)
Quarter: 2024Q4

REPORT INFORMATION
  Report Type: Spontaneous
  Country: BR (occurrence: BR)
  Receive Date: 20241010
  Receipt Date: 20241010
  Transmission Date: 20250115
  Serious: Yes (Life-Threatening, Other)
  Sender: IPSEN
  Company Number: BR-IPSEN Group, Research and Development-2024-20413

PATIENT
  Age: 23 Year
  Sex: Male

DRUGS (2)
  1. BOTULINUM TOXIN TYPE A [Suspect]
     Active Substance: BOTULINUM TOXIN TYPE A
     Indication: Muscle spasticity
     Dosage: DOSES THAT EXCEED 2,000 IU PER APPLICATION
     Route: 065
  2. BOTULINUM TOXIN TYPE A [Suspect]
     Active Substance: BOTULINUM TOXIN TYPE A
     Indication: Off label use

REACTIONS (4)
  - Dystonia [Unknown]
  - Muscular weakness [Unknown]
  - Off label use [Unknown]
  - Prescribed overdose [Unknown]
